FAERS Safety Report 5808301-7 (Version None)
Quarter: 2008Q3

REPORT INFORMATION
  Report Type: 
  Country: None (occurrence: None)
  Receive Date: 20080709
  Receipt Date: 20080625
  Transmission Date: 20090109
  Serious: Yes (Hospitalization)
  Sender: FDA-Public Use
  Company Number: SPI200800315

PATIENT
  Sex: Female

DRUGS (2)
  1. AMITIZA [Suspect]
     Dosage: UNK, UNK, ORAL
     Route: 048
  2. MINOCYCLINE HCL [Concomitant]

REACTIONS (1)
  - PANCREATITIS [None]
